FAERS Safety Report 5570344-9 (Version None)
Quarter: 2007Q4

REPORT INFORMATION
  Report Type: 
  Country: None (occurrence: None)
  Receive Date: 20071221
  Receipt Date: 20071129
  Transmission Date: 20080405
  Serious: Yes (Other)
  Sender: FDA-Public Use
  Company Number: US-SP-2007-03036

PATIENT
  Age: 72 Year
  Sex: Male
  Weight: 99.8 kg

DRUGS (1)
  1. THERACYS [Suspect]
     Indication: BLADDER CANCER
     Dates: start: 20070414

REACTIONS (3)
  - BOVINE TUBERCULOSIS [None]
  - DRUG RESISTANCE [None]
  - SEPSIS [None]
